FAERS Safety Report 16586226 (Version 1)
Quarter: 2019Q3

REPORT INFORMATION
  Report Type: Spontaneous
  Country: SI (occurrence: SI)
  Receive Date: 20190717
  Receipt Date: 20190717
  Transmission Date: 20191004
  Serious: Yes (Other)
  Sender: FDA-Public Use
  Company Number: SI-TEVA-2019-SI-1077442

PATIENT
  Age: 54 Year
  Sex: Female

DRUGS (7)
  1. NALGESIN FORTE 550 MG [Concomitant]
     Route: 065
  2. FRAGMIN 7.500 I.E./0,3 ML [Concomitant]
     Dosage: 7.5 IU
     Route: 065
  3. ECYTARA 10 MG [Concomitant]
     Dosage: 10 MILLIGRAM
     Route: 065
  4. AMPRIL 2,5 MG [Concomitant]
     Dosage: 2.5 MG
  5. ACIPAN 40 MG [Concomitant]
     Dosage: 40 MG
  6. PACLITAXIN 6 MG/ML, KONCENTRAT ZA RAZTOPINO ZA INFUNDIRANJE [Suspect]
     Active Substance: PACLITAXEL
     Indication: OVARIAN CANCER
     Dosage: 6 MG/ML CONCENTRATE FOR SOLUTION FOR INFUSION
     Route: 042
     Dates: start: 20190607, end: 20190607
  7. ANALGIN [Concomitant]
     Route: 065

REACTIONS (1)
  - Infusion related reaction [Recovered/Resolved]

NARRATIVE: CASE EVENT DATE: 20190607
